FAERS Safety Report 21585257 (Version 4)
Quarter: 2024Q3

REPORT INFORMATION
  Report Type: Spontaneous
  Country: US (occurrence: US)
  Receive Date: 20221111
  Receipt Date: 20240808
  Transmission Date: 20241017
  Serious: Yes (Other)
  Sender: NOVO NORDISK
  Company Number: US-NOVOPROD-872581

PATIENT
  Age: 69 Year
  Sex: Female
  Weight: 58.05 kg

DRUGS (3)
  1. TOUJEO [Suspect]
     Active Substance: INSULIN GLARGINE
     Indication: Product used for unknown indication
     Dosage: UNK
     Route: 058
     Dates: start: 201805, end: 20190805
  2. TRESIBA [Suspect]
     Active Substance: INSULIN DEGLUDEC
     Indication: Type 1 diabetes mellitus
     Dosage: 20-25 UNITS BEFORE BED
     Route: 058
     Dates: start: 201704, end: 201805
  3. METACRESOL [POLICRESULEN] [Concomitant]
     Indication: Product used for unknown indication
     Dosage: UNK
     Dates: end: 201708

REACTIONS (3)
  - Asthma [Recovered/Resolved]
  - Lung disorder [Recovered/Resolved]
  - Drug hypersensitivity [Recovered/Resolved]

NARRATIVE: CASE EVENT DATE: 20170401
